FAERS Safety Report 4435976-X (Version None)
Quarter: 2004Q3

REPORT INFORMATION
  Report Type: 
  Country: None (occurrence: None)
  Receive Date: 20040826
  Receipt Date: 20040811
  Transmission Date: 20050211
  Serious: Yes (Hospitalization)
  Sender: FDA-Public Use
  Company Number: 2004-BP-04299BP

PATIENT
  Age: 79 Year
  Sex: Female
  Weight: 54.4 kg

DRUGS (8)
  1. MIRAPEX [Suspect]
     Indication: PARKINSON'S DISEASE
     Dosage: 10 MG (SEE TEXT, 2.5 MG QID
     Dates: start: 20040218, end: 20040526
  2. SYMMETREL [Concomitant]
  3. GLUCOTROL [Concomitant]
  4. OSCAL (CALCIUM CARBONATE) [Concomitant]
  5. MEXIN [Concomitant]
  6. TENORMIN [Concomitant]
  7. VIOXX [Concomitant]
  8. SINEMET [Concomitant]

REACTIONS (8)
  - ABNORMAL BEHAVIOUR [None]
  - AGGRESSION [None]
  - BLOOD PRESSURE SYSTOLIC INCREASED [None]
  - CRYING [None]
  - DEATH OF RELATIVE [None]
  - DEATH OF SPOUSE [None]
  - HALLUCINATION [None]
  - MEDICATION ERROR [None]
